FAERS Safety Report 11981195 (Version 3)
Quarter: 2016Q1

REPORT INFORMATION
  Report Type: Spontaneous
  Country: CN (occurrence: CN)
  Receive Date: 20160129
  Receipt Date: 20160210
  Transmission Date: 20160526
  Serious: Yes (Hospitalization)
  Sender: FDA-Public Use
  Company Number: CN-ASTRAZENECA-2016SE08524

PATIENT
  Age: 51 Year
  Sex: Male

DRUGS (19)
  1. INSULIN GLARGINE [Concomitant]
     Active Substance: INSULIN GLARGINE
     Indication: BLOOD GLUCOSE ABNORMAL
  2. INSULIN ASPART [Concomitant]
     Active Substance: INSULIN ASPART
     Dates: start: 20160123
  3. INSULIN GLARGINE [Concomitant]
     Active Substance: INSULIN GLARGINE
     Indication: BLOOD GLUCOSE ABNORMAL
     Dates: start: 20160104
  4. ACARBOSE. [Concomitant]
     Active Substance: ACARBOSE
     Indication: BLOOD GLUCOSE ABNORMAL
     Dates: start: 20160104
  5. IRBESARTAN HYDROCHLOROTHIAZIDE [Concomitant]
     Active Substance: HYDROCHLOROTHIAZIDE\IRBESARTAN
     Indication: HYPERTENSION
     Dates: start: 20160104
  6. METFORMIN [Concomitant]
     Active Substance: METFORMIN HYDROCHLORIDE
     Indication: BLOOD GLUCOSE ABNORMAL
     Dates: start: 20160106
  7. ALFACALCIDOL [Concomitant]
     Active Substance: ALFACALCIDOL
     Dates: start: 20160107
  8. IRBESARTAN HYDROCHLOROTHIAZIDE [Concomitant]
     Active Substance: HYDROCHLOROTHIAZIDE\IRBESARTAN
     Indication: HYPERTENSION
     Dosage: IRBESARTAN 150 MG DAILY
     Dates: start: 20160104
  9. THIOCTIC ACID [Concomitant]
     Active Substance: THIOCTIC ACID
     Dates: start: 20160104
  10. ASPIRIN. [Concomitant]
     Active Substance: ASPIRIN
     Dates: start: 20160104
  11. DEXAMETHASONE SODIUM PHOSPHATE. [Concomitant]
     Active Substance: DEXAMETHASONE SODIUM PHOSPHATE
     Dates: start: 20160122
  12. SODIUM CHLORIDE. [Concomitant]
     Active Substance: SODIUM CHLORIDE
     Dates: start: 20160104
  13. BYETTA [Suspect]
     Active Substance: EXENATIDE
     Indication: DIABETES MELLITUS
     Route: 058
     Dates: start: 20160107, end: 20160123
  14. REPAGLINIDE. [Concomitant]
     Active Substance: REPAGLINIDE
     Dates: start: 20160104
  15. SODIUM CHLORIDE. [Concomitant]
     Active Substance: SODIUM CHLORIDE
     Dates: start: 20160122
  16. METFORMIN [Concomitant]
     Active Substance: METFORMIN HYDROCHLORIDE
     Indication: BLOOD GLUCOSE ABNORMAL
     Dates: start: 20160104
  17. ALPROSTADIL. [Concomitant]
     Active Substance: ALPROSTADIL
     Indication: PROMOTION OF PERIPHERAL CIRCULATION
     Dates: start: 20160104
  18. CALCIUM WITH VITAMIN D [Concomitant]
     Active Substance: CALCIUM\VITAMIN D
     Dosage: 0.3 G AND 100 IU DAILY
     Dates: start: 20160107
  19. ATORVASTATIN CALCIUM. [Concomitant]
     Active Substance: ATORVASTATIN CALCIUM
     Dates: start: 20160104

REACTIONS (4)
  - Rash generalised [Recovered/Resolved]
  - Eyelid oedema [Recovered/Resolved]
  - Drug hypersensitivity [Recovered/Resolved]
  - Erythema of eyelid [Recovered/Resolved]

NARRATIVE: CASE EVENT DATE: 20160119
